FAERS Safety Report 7280891-X (Version None)
Quarter: 2011Q1

REPORT INFORMATION
  Report Type: 
  Country: None (occurrence: None)
  Receive Date: 20110207
  Receipt Date: 20110207
  Transmission Date: 20110831
  Serious: Yes (Other)
  Sender: FDA-Public Use
  Company Number: None

PATIENT
  Age: 54 Year
  Sex: Female
  Weight: 98.4306 kg

DRUGS (2)
  1. TRIAD ALCOHOL PREP PAD ISOPROPAL 70% TRIAD DISPOSABLES, INC [Suspect]
     Indication: MULTIPLE SCLEROSIS
     Dosage: ONE PAD DAILY TOP
     Route: 061
     Dates: start: 20090109, end: 20110205
  2. WALGREENS ALCOHOL SWAB ISOPROPAS 70% WALGREENS CO [Suspect]

REACTIONS (3)
  - RASH [None]
  - IMPAIRED HEALING [None]
  - BACTERIAL INFECTION [None]
